FAERS Safety Report 25791562 (Version 1)
Quarter: 2025Q3

REPORT INFORMATION
  Report Type: Spontaneous
  Country: US (occurrence: US)
  Receive Date: 20250911
  Receipt Date: 20250911
  Transmission Date: 20251020
  Serious: Yes (Other)
  Sender: SANOFI AVENTIS
  Company Number: US-SA-2025SA270958

PATIENT
  Age: 76 Year
  Sex: Female

DRUGS (1)
  1. DUPIXENT [Suspect]
     Active Substance: DUPILUMAB
     Indication: Dermatitis atopic
     Dosage: 300 MG, QOW
     Route: 058
     Dates: start: 202412, end: 202503

REACTIONS (6)
  - Ovarian cancer stage IV [Unknown]
  - Dermatitis atopic [Unknown]
  - Rash pruritic [Unknown]
  - Skin exfoliation [Unknown]
  - Product dose omission issue [Unknown]
  - Rebound effect [Unknown]

NARRATIVE: CASE EVENT DATE: 20250601
